FAERS Safety Report 22259014 (Version 1)
Quarter: 2023Q2

REPORT INFORMATION
  Report Type: Spontaneous
  Country: US (occurrence: US)
  Receive Date: 20230427
  Receipt Date: 20230427
  Transmission Date: 20230722
  Serious: Yes (Other)
  Sender: FDA-Public Use
  Company Number: US-Shilpa Medicare Limited-SML-US-2023-00513

PATIENT
  Age: 56 Year
  Sex: Female

DRUGS (7)
  1. AZACITIDINE [Suspect]
     Active Substance: AZACITIDINE
     Indication: Primary myelofibrosis
  2. VENETOCLAX [Suspect]
     Active Substance: VENETOCLAX
     Indication: Primary myelofibrosis
  3. GEMTUZUMAB OZOGAMICIN [Suspect]
     Active Substance: GEMTUZUMAB OZOGAMICIN
     Indication: Primary myelofibrosis
  4. CYTARABINE\DAUNORUBICIN [Suspect]
     Active Substance: CYTARABINE\DAUNORUBICIN
     Indication: Primary myelofibrosis
     Dosage: CYTARABINE 100 MG/M2/DAUNORUBICIN 44MG
     Route: 042
  5. FLUDARABINE [Suspect]
     Active Substance: FLUDARABINE PHOSPHATE
     Indication: Primary myelofibrosis
  6. CYTARABINE [Suspect]
     Active Substance: CYTARABINE
     Indication: Primary myelofibrosis
  7. IDARUBICIN [Suspect]
     Active Substance: IDARUBICIN
     Indication: Primary myelofibrosis

REACTIONS (1)
  - Drug ineffective [Unknown]
